FAERS Safety Report 7810067-6 (Version None)
Quarter: 2011Q4

REPORT INFORMATION
  Report Type: 
  Country: None (occurrence: None)
  Receive Date: 20111012
  Receipt Date: 20111007
  Transmission Date: 20120403
  Serious: Yes (Other)
  Sender: FDA-Public Use
  Company Number: BR-PFIZER INC-2011240070

PATIENT
  Age: 49 Year
  Sex: Female
  Weight: 160 kg

DRUGS (1)
  1. LYRICA [Suspect]
     Indication: FIBROMYALGIA
     Dosage: 75 MG PER DAY
     Route: 048
     Dates: start: 20090101

REACTIONS (5)
  - HEPATIC LESION [None]
  - MALAISE [None]
  - NAUSEA [None]
  - FOOT DEFORMITY [None]
  - FEELING DRUNK [None]
